FAERS Safety Report 20572621 (Version 1)
Quarter: 2022Q1

REPORT INFORMATION
  Report Type: Report from Study
  Country: FR (occurrence: None)
  Receive Date: 20220309
  Receipt Date: 20220309
  Transmission Date: 20220423
  Serious: Yes (Other)
  Sender: FDA-Public Use
  Company Number: 2022A100113

PATIENT
  Age: 954 Month
  Sex: Female
  Weight: 82 kg

DRUGS (10)
  1. EVUSHELD [Suspect]
     Active Substance: CILGAVIMAB\TIXAGEVIMAB
     Indication: COVID-19 prophylaxis
     Route: 030
     Dates: start: 20211227
  2. SOLUPRED [Concomitant]
     Route: 065
  3. OMEPRAZOLE [Concomitant]
     Active Substance: OMEPRAZOLE
     Route: 065
  4. LEVOTHYROXINE [Concomitant]
     Active Substance: LEVOTHYROXINE
     Route: 065
  5. KARDEGIC [Concomitant]
     Active Substance: ASPIRIN DL-LYSINE
     Route: 065
  6. POTASSIUM CHLORIDE [Concomitant]
     Active Substance: POTASSIUM CHLORIDE
     Dosage: 600 MG 3/D
     Route: 065
  7. ALTHIAZIDE\SPIRONOLACTONE [Concomitant]
     Active Substance: ALTHIAZIDE\SPIRONOLACTONE
     Dosage: 1/D
     Route: 065
  8. OPHTHALMOLOGIC : STERDEX [Concomitant]
     Dosage: UNKNOWN
     Route: 065
  9. OPHTHALMOLOGIC : DACUDOSE [Concomitant]
     Dosage: UNKNOWN
     Route: 065
  10. OPHTHALMOLOGIC : CELLUVISC [Concomitant]
     Dosage: UNKNOWN
     Route: 065

REACTIONS (1)
  - Angina pectoris [Recovered/Resolved]

NARRATIVE: CASE EVENT DATE: 20211228
